FAERS Safety Report 9659685 (Version 1)
Quarter: 2013Q4

REPORT INFORMATION
  Report Type: Report from Study
  Country: KR (occurrence: KR)
  Receive Date: 20131031
  Receipt Date: 20131031
  Transmission Date: 20140711
  Serious: Yes (Hospitalization)
  Sender: FDA-Public Use
  Company Number: KR-ABBVIE-13P-090-1160897-00

PATIENT
  Age: 20 Year
  Sex: Male

DRUGS (6)
  1. HUMIRA [Suspect]
     Indication: CROHN^S DISEASE
     Dosage: INDUCTION THERAPY
     Dates: start: 20131002, end: 20131002
  2. HUMIRA [Suspect]
     Dosage: INDUCTION THERAPY
     Dates: start: 20131016, end: 20131016
  3. MERCAPTOPURINE [Concomitant]
     Indication: CROHN^S DISEASE
     Route: 048
  4. MESALAZINE [Concomitant]
     Indication: CROHN^S DISEASE
     Route: 048
  5. SACCHAROMYCES BOULARDIL LYOPHYLIZED [Concomitant]
     Indication: CROHN^S DISEASE
     Route: 048
     Dates: start: 20120409
  6. SULGLYCOTIDE [Concomitant]
     Indication: CROHN^S DISEASE
     Route: 048
     Dates: start: 20130909

REACTIONS (1)
  - Hand fracture [Recovered/Resolved]
